FAERS Safety Report 8992474 (Version 2)
Quarter: 2013Q1

REPORT INFORMATION
  Report Type: Spontaneous
  Country: US (occurrence: US)
  Receive Date: 20121231
  Receipt Date: 20130102
  Transmission Date: 20140127
  Serious: Yes (Hospitalization, Other)
  Sender: FDA-Public Use
  Company Number: US-ELI_LILLY_AND_COMPANY-US201212007251

PATIENT
  Sex: Female

DRUGS (17)
  1. FORTEO [Suspect]
     Dosage: 20 UG, QD
     Dates: start: 201101
  2. ACETAMINOPHEN [Concomitant]
     Dosage: 2 DF, UNK
  3. AUGMENTIN                               /SCH/ [Concomitant]
  4. ASPIRIN [Concomitant]
     Dosage: 325 MG, BID
  5. ASTELIN [Concomitant]
  6. PLAVIX [Concomitant]
     Dosage: 75 MG, UNK
  7. DRISDOL [Concomitant]
  8. DIFLUCAN [Concomitant]
  9. LISINOPRIL [Concomitant]
  10. LORAZEPAM [Concomitant]
     Dosage: 0.25 MG, QD
  11. METOPROLOL [Concomitant]
  12. VIGAMOX [Concomitant]
     Dosage: UNK, QD
  13. PYRIDIUM [Concomitant]
  14. PRED FORTE [Concomitant]
  15. BETIMOL [Concomitant]
  16. PREDNISONE [Concomitant]
     Indication: OSTEOPOROSIS
     Dosage: 1 MG, QD
  17. VITAMIN D [Concomitant]
     Dosage: UNK, WEEKLY (1/W)

REACTIONS (4)
  - Dehydration [Unknown]
  - Bronchitis [Unknown]
  - Asthenia [Unknown]
  - Cerebrovascular accident [Unknown]
